FAERS Safety Report 7775960-1 (Version None)
Quarter: 2011Q3

REPORT INFORMATION
  Report Type: 
  Country: None (occurrence: None)
  Receive Date: 20110923
  Receipt Date: 20110915
  Transmission Date: 20111222
  Serious: Yes (Hospitalization, Other)
  Sender: FDA-Public Use
  Company Number: US-ASTRAZENECA-2009SE24952

PATIENT
  Age: 28352 Day
  Sex: Male

DRUGS (2)
  1. UNSPECIFIED [Suspect]
     Route: 065
  2. CRESTOR [Suspect]
     Indication: CORONARY ARTERY DISEASE
     Route: 048

REACTIONS (5)
  - ANAEMIA [None]
  - GASTRIC ULCER PERFORATION [None]
  - GASTRITIS [None]
  - GASTROINTESTINAL HAEMORRHAGE [None]
  - ADVERSE DRUG REACTION [None]
